FAERS Safety Report 8517598-4 (Version None)
Quarter: 2012Q3

REPORT INFORMATION
  Report Type: 
  Country: None (occurrence: None)
  Receive Date: 20120718
  Receipt Date: 20120710
  Transmission Date: 20120928
  Serious: Yes (Hospitalization)
  Sender: FDA-Public Use
  Company Number: JP-B.I. PHARMACEUTICALS,INC./RIDGEFIELD-2012-EU-02159GD

PATIENT
  Age: 80 Year
  Sex: Male

DRUGS (1)
  1. DABIGATRAN ETEXILATE [Suspect]
     Indication: ATRIAL FIBRILLATION
     Route: 048

REACTIONS (4)
  - HEMIPLEGIA [None]
  - DYSLALIA [None]
  - CEREBRAL INFARCTION [None]
  - SENSORY DISTURBANCE [None]
